FAERS Safety Report 5079406-6 (Version None)
Quarter: 2006Q3

REPORT INFORMATION
  Report Type: 
  Country: None (occurrence: None)
  Receive Date: 20060814
  Receipt Date: 20060804
  Transmission Date: 20061208
  Serious: Yes (Disabling, Other)
  Sender: FDA-Public Use
  Company Number: 2006UW15667

PATIENT
  Age: 81 Year
  Sex: Female

DRUGS (6)
  1. ARIMIDEX [Suspect]
     Route: 048
  2. MACROBID [Interacting]
  3. LIPITOR [Interacting]
  4. CRESTOR [Concomitant]
     Route: 048
  5. MACROBID [Concomitant]
  6. GLYBURIDE [Concomitant]

REACTIONS (4)
  - BLISTER [None]
  - DRUG INTERACTION [None]
  - INSOMNIA [None]
  - RASH PRURITIC [None]
